FAERS Safety Report 8339455 (Version 2)
Quarter: 2012Q4

REPORT INFORMATION
  Report Type: 
  Country: US (occurrence: US)
  Receive Date: 20120117
  Receipt Date: 20121212
  Transmission Date: 20130627
  Serious: Yes (Hospitalization)
  Sender: FDA-Public Use
  Company Number: US-GLAXOSMITHKLINE-A0928782A

PATIENT
  Sex: Male

DRUGS (1)
  1. AVANDIA [Suspect]
     Indication: DIABETES MELLITUS
     Dosage: 8MG Per day
     Route: 048
     Dates: start: 200202, end: 200702

REACTIONS (4)
  - Cardiac failure congestive [Unknown]
  - Vascular graft [Unknown]
  - Catheterisation cardiac [Unknown]
  - Myocardial infarction [Unknown]
